FAERS Safety Report 7561923-8 (Version None)
Quarter: 2011Q2

REPORT INFORMATION
  Report Type: 
  Country: None (occurrence: None)
  Receive Date: 20110621
  Receipt Date: 20110606
  Transmission Date: 20111010
  Serious: Yes (Hospitalization)
  Sender: FDA-Public Use
  Company Number: US-BIOGENIDEC-2011BI018779

PATIENT
  Age: 63 Year
  Sex: Female

DRUGS (29)
  1. PROTONIX [Concomitant]
  2. BACLOFEN [Concomitant]
  3. COREG [Concomitant]
  4. VITAMIN D [Concomitant]
  5. TYSABRI [Suspect]
     Indication: MULTIPLE SCLEROSIS
     Route: 042
     Dates: start: 20070706
  6. COLACE [Concomitant]
  7. MIRALAX [Concomitant]
  8. PREMARIN [Concomitant]
  9. ALBUTEROL SULFATE AUTOHALER [Concomitant]
  10. PROVIGIL [Concomitant]
  11. MOBIC [Concomitant]
  12. AMITIZA [Concomitant]
  13. REGLAN [Concomitant]
  14. KEPPRA [Concomitant]
  15. SYNTHROID [Concomitant]
  16. LASIX [Concomitant]
  17. OXYCONTIN [Concomitant]
  18. BENADRYL [Concomitant]
  19. FOLIC ACID [Concomitant]
  20. CLARITIN [Concomitant]
  21. AMITIZA [Concomitant]
  22. ZYRTEC [Concomitant]
  23. MIRAPEX [Concomitant]
  24. SENOKOT [Concomitant]
  25. MAXZIDE [Concomitant]
  26. CYMBALTA [Concomitant]
  27. SPIRONOLACTONE [Concomitant]
  28. POTASSIUM CHLORIDE [Concomitant]
  29. VERPAMIL HCL [Concomitant]

REACTIONS (10)
  - HYPERLIPIDAEMIA [None]
  - ASTHENIA [None]
  - BLOOD SODIUM DECREASED [None]
  - SPINAL COLUMN STENOSIS [None]
  - FALL [None]
  - BLOOD POTASSIUM DECREASED [None]
  - DIABETES MELLITUS [None]
  - URINARY TRACT INFECTION [None]
  - LIVER FUNCTION TEST ABNORMAL [None]
  - BLOOD GLUCOSE ABNORMAL [None]
